FAERS Safety Report 4935885-3 (Version None)
Quarter: 2006Q1

REPORT INFORMATION
  Report Type: 
  Country: None (occurrence: None)
  Receive Date: 20060127
  Receipt Date: 20051128
  Transmission Date: 20060701
  Serious: Yes (Other)
  Sender: FDA-Public Use
  Company Number: 2005161477

PATIENT
  Age: 63 Year
  Sex: Male
  Weight: 115.6672 kg

DRUGS (8)
  1. LYRICA [Suspect]
     Indication: PAIN
     Dosage: 150 MG (75 MG, 2 IN 1 D), ORAL
     Route: 048
     Dates: start: 20051128
  2. SYNTHROID [Concomitant]
  3. TRICOR [Concomitant]
  4. LEXAPRO [Concomitant]
  5. FOLTX (CYANOCOBALAMIN, FOLIC ACID, PYRIDOXINE) [Concomitant]
  6. FOSINOPRIL [Concomitant]
  7. METHOCARBAMOL [Concomitant]
  8. HYDROCODONE BITARTRATE [Concomitant]

REACTIONS (5)
  - BURNING SENSATION [None]
  - MUSCLE SPASMS [None]
  - MUSCULOSKELETAL DISCOMFORT [None]
  - NERVE COMPRESSION [None]
  - PAIN IN EXTREMITY [None]
